FAERS Safety Report 21208609 (Version 2)
Quarter: 2022Q3

REPORT INFORMATION
  Report Type: Report from Study
  Country: US (occurrence: US)
  Receive Date: 20220812
  Receipt Date: 20220912
  Transmission Date: 20221027
  Serious: Yes (Life-Threatening, Hospitalization, Other)
  Sender: FDA-Public Use
  Company Number: US-BRISTOL-MYERS SQUIBB COMPANY-2022-088647

PATIENT
  Age: 63 Year
  Sex: Female
  Weight: 100.19 kg

DRUGS (1)
  1. REVLIMID [Suspect]
     Active Substance: LENALIDOMIDE
     Indication: Plasma cell myeloma
     Dosage: FOR 21 DAYS,  HOLD 7 DAYS, REPEAT
     Route: 048
     Dates: start: 202206

REACTIONS (1)
  - Pulmonary embolism [Unknown]
